FAERS Safety Report 19972750 (Version 1)
Quarter: 2021Q4

REPORT INFORMATION
  Report Type: Spontaneous
  Country: US (occurrence: US)
  Receive Date: 20211019
  Receipt Date: 20211019
  Transmission Date: 20220304
  Serious: Yes (Hospitalization)
  Sender: FDA-Public Use
  Company Number: None

PATIENT
  Sex: Female

DRUGS (8)
  1. REPATHA [Suspect]
     Active Substance: EVOLOCUMAB
     Indication: Arteriosclerosis coronary artery
     Dosage: ?          OTHER FREQUENCY:Q2WKS;
     Route: 058
     Dates: start: 20210904
  2. DIGOXIN [Concomitant]
     Active Substance: DIGOXIN
  3. NEO/POLY/HC SUS [Concomitant]
  4. CEFUROXIME [Concomitant]
     Active Substance: CEFUROXIME
  5. CHLORTHALIDONE [Concomitant]
     Active Substance: CHLORTHALIDONE
  6. ATENOLOL [Concomitant]
     Active Substance: ATENOLOL
  7. CHLORD/CLIDI [Concomitant]
  8. NITROFURANTOIN [Concomitant]
     Active Substance: NITROFURANTOIN

REACTIONS (1)
  - Ear infection [None]
